FAERS Safety Report 10801534 (Version 1)
Quarter: 2015Q1

REPORT INFORMATION
  Report Type: Spontaneous
  Country: CH (occurrence: CH)
  Receive Date: 20150217
  Receipt Date: 20150217
  Transmission Date: 20150721
  Serious: Yes (Hospitalization)
  Sender: FDA-Public Use
  Company Number: CH-RANBAXY-2014R1-77281

PATIENT
  Age: 51 Year
  Sex: Male

DRUGS (7)
  1. ATAZANAVIR [Interacting]
     Active Substance: ATAZANAVIR
     Indication: PRODUCT USED FOR UNKNOWN INDICATION
     Dosage: 300 MG, QID
     Route: 065
  2. DIDANOSINE. [Concomitant]
     Active Substance: DIDANOSINE
     Indication: PRODUCT USED FOR UNKNOWN INDICATION
     Dosage: 400 MG, QID
     Route: 065
  3. FLUTICASONE [Suspect]
     Active Substance: FLUTICASONE\FLUTICASONE PROPIONATE
     Indication: DYSPNOEA
     Dosage: UNK
     Route: 055
  4. CLOBETASOL [Suspect]
     Active Substance: CLOBETASOL
     Indication: RASH
     Dosage: UNK
     Route: 061
  5. RITONAVIR. [Interacting]
     Active Substance: RITONAVIR
     Indication: PRODUCT USED FOR UNKNOWN INDICATION
     Dosage: 100 MG, QID
     Route: 065
  6. ETRAVIRINE [Concomitant]
     Active Substance: ETRAVIRINE
     Indication: PRODUCT USED FOR UNKNOWN INDICATION
     Dosage: 400 MG, QID
     Route: 065
  7. TRIAMCINOLONE [Interacting]
     Active Substance: TRIAMCINOLONE
     Indication: EPICONDYLITIS
     Dosage: 40 MG, SINGLE
     Route: 014

REACTIONS (5)
  - Pulmonary embolism [Unknown]
  - Rash [Unknown]
  - Cushing^s syndrome [Recovered/Resolved]
  - Drug interaction [Unknown]
  - Deep vein thrombosis [Unknown]
